FAERS Safety Report 5673058-X (Version None)
Quarter: 2008Q1

REPORT INFORMATION
  Report Type: 
  Country: None (occurrence: None)
  Receive Date: 20080319
  Receipt Date: 20080122
  Transmission Date: 20080703
  Serious: Yes (Hospitalization)
  Sender: FDA-Public Use
  Company Number: US-ASTRAZENECA-2008UW01549

PATIENT
  Age: 70 Year
  Sex: Male

DRUGS (8)
  1. SYMBICORT [Suspect]
     Dosage: 80.4.5 UG
     Route: 055
  2. METFORMIN HCL [Concomitant]
  3. NEXIUM [Concomitant]
     Route: 048
  4. NORVASC [Concomitant]
  5. XANAX [Concomitant]
  6. LOPRESSOR [Concomitant]
  7. AMBIEN [Concomitant]
  8. HYDROCHLOROTHIAZIDE [Concomitant]

REACTIONS (1)
  - HYPERTENSION [None]
